FAERS Safety Report 12157926 (Version 1)
Quarter: 2016Q1

REPORT INFORMATION
  Report Type: Spontaneous
  Country: US (occurrence: US)
  Receive Date: 20160308
  Receipt Date: 20160308
  Transmission Date: 20160526
  Serious: No
  Sender: FDA-Public Use
  Company Number: US-JNJFOC-20150121239

PATIENT
  Sex: Female
  Weight: 58 kg

DRUGS (22)
  1. IMBRUVICA [Suspect]
     Active Substance: IBRUTINIB
     Indication: CHRONIC LYMPHOCYTIC LEUKAEMIA
     Route: 048
     Dates: start: 20140425
  2. ARICEPT [Concomitant]
     Active Substance: DONEPEZIL HYDROCHLORIDE
  3. AZELASTINE [Concomitant]
     Active Substance: AZELASTINE
  4. CELEBREX [Concomitant]
     Active Substance: CELECOXIB
  5. DULCOLAX NOS [Concomitant]
     Active Substance: BISACODYL OR DOCUSATE SODIUM
  6. LAMICTAL [Concomitant]
     Active Substance: LAMOTRIGINE
  7. MELATONIN [Concomitant]
     Active Substance: MELATONIN
  8. OSTEO BI-FLEX [Concomitant]
     Active Substance: CHONDROITIN SULFATE A\GLUCOSAMINE
  9. TRAZODONE [Concomitant]
     Active Substance: TRAZODONE HYDROCHLORIDE
  10. ACYCLOVIR. [Concomitant]
     Active Substance: ACYCLOVIR
  11. CITALOPRAM [Concomitant]
     Active Substance: CITALOPRAM HYDROBROMIDE
  12. PHENERGAN [Concomitant]
     Active Substance: PROMETHAZINE HYDROCHLORIDE
  13. ALEVE [Concomitant]
     Active Substance: NAPROXEN SODIUM
  14. TRINTELLIX [Concomitant]
     Active Substance: VORTIOXETINE HYDROBROMIDE
  15. CLONAZEPAM. [Concomitant]
     Active Substance: CLONAZEPAM
  16. MACROBID [Concomitant]
     Active Substance: NITROFURANTOIN\NITROFURANTOIN MONOHYDRATE
  17. TYLENOL 8 HR [Concomitant]
     Active Substance: ACETAMINOPHEN
  18. CEPHALEXIN. [Concomitant]
     Active Substance: CEPHALEXIN
  19. BENZONATATE. [Concomitant]
     Active Substance: BENZONATATE
  20. HYDROMORPHONE [Concomitant]
     Active Substance: HYDROMORPHONE
  21. TRAMADOL. [Concomitant]
     Active Substance: TRAMADOL
  22. LEVOFLOXACIN. [Concomitant]
     Active Substance: LEVOFLOXACIN

REACTIONS (7)
  - Insomnia [Not Recovered/Not Resolved]
  - Joint stiffness [Not Recovered/Not Resolved]
  - Anxiety [Not Recovered/Not Resolved]
  - Depression [Not Recovered/Not Resolved]
  - Dizziness [Not Recovered/Not Resolved]
  - Weight decreased [Not Recovered/Not Resolved]
  - Decreased appetite [Not Recovered/Not Resolved]
